FAERS Safety Report 8962089 (Version 3)
Quarter: 2012Q4

REPORT INFORMATION
  Report Type: 
  Country: BE (occurrence: BE)
  Receive Date: 20121213
  Receipt Date: 20121231
  Transmission Date: 20130627
  Serious: Yes (Other)
  Sender: FDA-Public Use
  Company Number: BE-RANBAXY-2012RR-63005

PATIENT
  Age: 63 Year
  Sex: Female

DRUGS (4)
  1. LANSOPRAZOLE [Suspect]
     Indication: ALLERGY TEST
     Dosage: 15 mg/day
     Route: 048
  2. OMEPRAZOLE [Suspect]
     Indication: REFLUX GASTRITIS
     Dosage: 20 mg/day
     Route: 065
  3. OMEPRAZOLE [Suspect]
     Indication: ALLERGY TEST
     Dosage: 20 mg, qd
     Route: 048
  4. PANTOPRAZOLE [Suspect]
     Indication: ALLERGY TEST
     Dosage: 20 mg, qd, each morning
     Route: 048

REACTIONS (2)
  - Prurigo [Recovered/Resolved]
  - Drug hypersensitivity [Recovered/Resolved]
